FAERS Safety Report 22942436 (Version 2)
Quarter: 2025Q1

REPORT INFORMATION
  Report Type: Spontaneous
  Country: US (occurrence: US)
  Receive Date: 20230914
  Receipt Date: 20250306
  Transmission Date: 20250408
  Serious: Yes (Hospitalization, Other)
  Sender: BAYER HEALTHCARE PHARMACEUTICALS INC.
  Company Number: US-BAYER-2023A123315

PATIENT
  Age: 25 Year
  Sex: Female

DRUGS (1)
  1. MIRENA [Suspect]
     Active Substance: LEVONORGESTREL
     Indication: Contraception
     Dosage: 20?G/DAY
     Route: 015
     Dates: start: 20100813, end: 20220511

REACTIONS (20)
  - Embedded device [None]
  - Colitis ulcerative [Recovering/Resolving]
  - Heavy menstrual bleeding [None]
  - Abdominal pain [None]
  - Rectal haemorrhage [None]
  - Irritable bowel syndrome [None]
  - Device expulsion [None]
  - Device dislocation [None]
  - Abdominal discomfort [None]
  - Change of bowel habit [None]
  - Gastrointestinal pain [None]
  - Gastrointestinal disorder [None]
  - Emotional distress [None]
  - Deformity [None]
  - Anhedonia [None]
  - Diarrhoea [None]
  - Dysmenorrhoea [None]
  - Condition aggravated [None]
  - Neuralgia [None]
  - Device use issue [None]

NARRATIVE: CASE EVENT DATE: 20190101
